FAERS Safety Report 19054308 (Version 5)
Quarter: 2021Q4

REPORT INFORMATION
  Report Type: Report from Study
  Country: BR (occurrence: BR)
  Receive Date: 20210324
  Receipt Date: 20211228
  Transmission Date: 20220303
  Serious: Yes (Hospitalization, Other)
  Sender: FDA-Public Use
  Company Number: NVSC2021BR066202

PATIENT
  Age: 52 Year
  Sex: Male
  Weight: 83.5 kg

DRUGS (11)
  1. GILENYA [Suspect]
     Active Substance: FINGOLIMOD HYDROCHLORIDE
     Indication: Multiple sclerosis
     Dosage: 0.5 MG, QD
     Route: 048
     Dates: start: 20190520
  2. GILENYA [Suspect]
     Active Substance: FINGOLIMOD HYDROCHLORIDE
     Dosage: UNK
     Route: 065
     Dates: start: 2019
  3. GILENYA [Suspect]
     Active Substance: FINGOLIMOD HYDROCHLORIDE
     Dosage: UNK
     Route: 065
  4. GILENYA [Suspect]
     Active Substance: FINGOLIMOD HYDROCHLORIDE
     Dosage: 0.5 MG, QD
     Route: 048
     Dates: start: 2019
  5. CAFFEINE\DIPYRONE\ORPHENADRINE [Concomitant]
     Active Substance: CAFFEINE\DIPYRONE\ORPHENADRINE
     Indication: Pain
     Dosage: 88 MG, PRN
     Route: 048
  6. FINGOLIMOD HYDROCHLORIDE [Concomitant]
     Active Substance: FINGOLIMOD HYDROCHLORIDE
     Indication: Product used for unknown indication
     Dosage: 0.5 MG
     Route: 065
  7. FINGOLIMOD [Concomitant]
     Active Substance: FINGOLIMOD
     Indication: Multiple sclerosis
     Dosage: 0.5 MG, QD
     Route: 048
     Dates: start: 2021
  8. PURAN [Concomitant]
     Active Substance: LEVOTHYROXINE SODIUM
     Indication: Hormone replacement therapy
     Dosage: 50 MG, QD (MORE THAN 02 YEARS AGO AND STOPPED AFTER MORE THAN A YEAR)
     Route: 048
  9. PURAN [Concomitant]
     Active Substance: LEVOTHYROXINE SODIUM
     Dosage: 75 MG, QD
     Route: 048
     Dates: start: 2020, end: 202108
  10. PURAN [Concomitant]
     Active Substance: LEVOTHYROXINE SODIUM
     Dosage: 100 MG, QD
     Route: 048
     Dates: start: 202108, end: 202109
  11. PURAN [Concomitant]
     Active Substance: LEVOTHYROXINE SODIUM
     Dosage: 88 MG, QD
     Route: 048
     Dates: start: 202109

REACTIONS (27)
  - Blood pressure fluctuation [Recovered/Resolved]
  - Renal cancer [Recovered/Resolved]
  - Breath odour [Recovered/Resolved]
  - Body temperature increased [Recovered/Resolved]
  - Decreased appetite [Recovered/Resolved]
  - Hypoxia [Not Recovered/Not Resolved]
  - Bradycardia [Unknown]
  - Asbestosis [Not Recovered/Not Resolved]
  - Pulmonary fibrosis [Not Recovered/Not Resolved]
  - Tachypnoea [Recovered/Resolved]
  - Hypoxia [Recovered/Resolved]
  - Asthenia [Recovered/Resolved]
  - Decreased appetite [Recovered/Resolved]
  - Dizziness [Recovered/Resolved]
  - Multiple sclerosis relapse [Recovered/Resolved]
  - Pain [Recovered/Resolved]
  - Headache [Recovered/Resolved]
  - Dysstasia [Unknown]
  - Heart rate irregular [Unknown]
  - Dyspnoea [Recovered/Resolved]
  - Eating disorder [Unknown]
  - Movement disorder [Unknown]
  - Hepatic steatosis [Not Recovered/Not Resolved]
  - Blood cholesterol increased [Not Recovered/Not Resolved]
  - Blood pressure abnormal [Unknown]
  - Headache [Recovered/Resolved]
  - Product dose omission issue [Unknown]

NARRATIVE: CASE EVENT DATE: 20190101
